FAERS Safety Report 9640858 (Version 1)
Quarter: 2013Q4

REPORT INFORMATION
  Report Type: Report from Study
  Country: US (occurrence: US)
  Receive Date: 20131023
  Receipt Date: 20131023
  Transmission Date: 20140711
  Serious: No
  Sender: FDA-Public Use
  Company Number: US-ABBVIE-13P-163-1072455-00

PATIENT
  Age: 43 Year
  Sex: Female

DRUGS (2)
  1. LUPRON DEPOT [Suspect]
     Indication: HORMONE LEVEL ABNORMAL
     Route: 050
     Dates: start: 20130311
  2. JINTELI [Suspect]
     Indication: OSTEOPOROSIS PROPHYLAXIS
     Dosage: 1 MG/5 MCG
     Dates: start: 20130311, end: 20130331

REACTIONS (2)
  - Feeling abnormal [Recovering/Resolving]
  - Vision blurred [Recovering/Resolving]
